FAERS Safety Report 10301786 (Version 1)
Quarter: 2014Q3

REPORT INFORMATION
  Report Type: Spontaneous
  Country: US (occurrence: None)
  Receive Date: 20140709
  Receipt Date: 20140709
  Transmission Date: 20150326
  Serious: Yes (Other)
  Sender: FDA-Public Use
  Company Number: None

PATIENT
  Age: 55 Year
  Sex: Female
  Weight: 58.97 kg

DRUGS (1)
  1. FLUCONAZOLE. [Suspect]
     Active Substance: FLUCONAZOLE
     Indication: PRODUCT USED FOR UNKNOWN INDICATION
     Dosage: 1 PILL DAILY ONCE DAILY ORAL
     Route: 048
     Dates: start: 20140630, end: 20140706

REACTIONS (5)
  - Abdominal pain [None]
  - Hepatomegaly [None]
  - Breast swelling [None]
  - Overdose [None]
  - Lymphatic disorder [None]

NARRATIVE: CASE EVENT DATE: 20140701
